FAERS Safety Report 8630244 (Version 3)
Quarter: 2014Q1

REPORT INFORMATION
  Report Type: Spontaneous
  Country: US (occurrence: US)
  Receive Date: 20120622
  Receipt Date: 20140131
  Transmission Date: 20141002
  Serious: Yes (Hospitalization, Disabling, Other)
  Sender: FDA-Public Use
  Company Number: US-ASTRAZENECA-2012SE34447

PATIENT
  Age: 59 Year
  Sex: Female
  Weight: 127 kg

DRUGS (19)
  1. NEXIUM [Suspect]
     Indication: BARRETT^S OESOPHAGUS
     Route: 048
     Dates: start: 2000, end: 2011
  2. NEXIUM [Suspect]
     Indication: GASTROOESOPHAGEAL REFLUX DISEASE
     Route: 048
     Dates: start: 2000, end: 2011
  3. NEXIUM [Suspect]
     Indication: BARRETT^S OESOPHAGUS
     Route: 048
     Dates: start: 20020313
  4. NEXIUM [Suspect]
     Indication: GASTROOESOPHAGEAL REFLUX DISEASE
     Route: 048
     Dates: start: 20020313
  5. NEXIUM [Suspect]
     Indication: BARRETT^S OESOPHAGUS
     Route: 048
     Dates: start: 20050624
  6. NEXIUM [Suspect]
     Indication: GASTROOESOPHAGEAL REFLUX DISEASE
     Route: 048
     Dates: start: 20050624
  7. RANITIDINE [Concomitant]
  8. PREVACID [Concomitant]
  9. GAVISCON [Concomitant]
  10. SIMVASTATIN [Concomitant]
  11. OXYCONTIN [Concomitant]
  12. XANEX/ALPRAZOLAM [Concomitant]
     Route: 048
     Dates: start: 20020415
  13. SEROQUEL [Concomitant]
  14. GABAPENTIN [Concomitant]
  15. FISH OIL [Concomitant]
  16. ACIPHEX [Concomitant]
  17. VITAMIN D [Concomitant]
  18. VITAMIN C [Concomitant]
  19. TRAZODONE [Concomitant]
     Route: 048

REACTIONS (18)
  - Mobility decreased [Unknown]
  - Suicidal ideation [Unknown]
  - Bone disorder [Unknown]
  - Arthritis [Unknown]
  - Depression [Unknown]
  - Multiple fractures [Unknown]
  - Chondropathy [Unknown]
  - Poor quality sleep [Unknown]
  - Anxiety [Unknown]
  - Bipolar disorder [Unknown]
  - Diabetes mellitus [Unknown]
  - Hypothyroidism [Unknown]
  - Vitamin D deficiency [Unknown]
  - Osteoporosis [Unknown]
  - Arthropathy [Unknown]
  - Musculoskeletal discomfort [Unknown]
  - Chronic obstructive pulmonary disease [Unknown]
  - Insomnia [Unknown]
